FAERS Safety Report 8950277 (Version 1)
Quarter: 2012Q4

REPORT INFORMATION
  Report Type: 
  Country: MX (occurrence: MX)
  Receive Date: 20121205
  Receipt Date: 20121205
  Transmission Date: 20130627
  Serious: Yes (Death, Other)
  Sender: FDA-Public Use
  Company Number: PHHY2012MX106665

PATIENT
  Age: 84 None
  Sex: Male

DRUGS (9)
  1. GALVUS [Suspect]
     Indication: DIABETES MELLITUS
     Dosage: 50 mg, daily
     Route: 048
     Dates: start: 20120916, end: 20121103
  2. ONBREZ [Suspect]
     Indication: COUGH
     Dosage: 1 inhalation, daily
     Dates: start: 20120916, end: 20121003
  3. PHARMATON [Concomitant]
     Dosage: 1 DF, daily
     Dates: end: 20121026
  4. MISTS [Concomitant]
     Indication: COUGH
     Dosage: 1 DF, at night
     Dates: start: 20120916, end: 20121026
  5. CORDARONE [Concomitant]
     Indication: ARRHYTHMIA
     Dosage: 1 DF, BID
     Dates: start: 20120916, end: 20121026
  6. GLUCERNA [Concomitant]
     Dosage: 1 DF, UNK
     Dates: start: 20120916, end: 20121026
  7. IMPLICANE [Concomitant]
     Indication: DEPRESSED MOOD
     Dosage: 1 DF, daily
     Dates: start: 20120916, end: 20121026
  8. TOPIRAMATE [Concomitant]
     Indication: NEURITIS
     Dosage: 1 DF, daily
     Dates: start: 20120916
  9. GAMMADOL [Concomitant]
     Indication: PAIN
     Dosage: 1 DF, BID
     Dates: start: 20120916, end: 20121026

REACTIONS (12)
  - Prostate cancer [Fatal]
  - Lung neoplasm malignant [Fatal]
  - Metastases to bladder [Fatal]
  - Metastases to stomach [Fatal]
  - Metastases to oesophagus [Fatal]
  - Metastases to large intestine [Fatal]
  - Neoplasm [Fatal]
  - Upper limb fracture [Fatal]
  - Hypokinesia [Fatal]
  - Pain [Fatal]
  - Infection [Fatal]
  - Fall [Fatal]
